FAERS Safety Report 20953646 (Version 6)
Quarter: 2025Q2

REPORT INFORMATION
  Report Type: Report from Study
  Country: AU (occurrence: AU)
  Receive Date: 20220613
  Receipt Date: 20250602
  Transmission Date: 20250717
  Serious: Yes (Disabling, Other)
  Sender: ROCHE
  Company Number: AU-ROCHE-3111393

PATIENT
  Age: 48 Year
  Sex: Female

DRUGS (11)
  1. OCREVUS [Suspect]
     Active Substance: OCRELIZUMAB
     Indication: Multiple sclerosis
     Route: 042
     Dates: start: 20220601, end: 20220601
  2. OCREVUS [Suspect]
     Active Substance: OCRELIZUMAB
     Route: 042
     Dates: start: 20221130, end: 20221130
  3. OCREVUS [Suspect]
     Active Substance: OCRELIZUMAB
     Route: 042
     Dates: start: 20240529, end: 20240529
  4. OCREVUS [Suspect]
     Active Substance: OCRELIZUMAB
     Route: 042
  5. OCREVUS [Suspect]
     Active Substance: OCRELIZUMAB
     Route: 042
     Dates: start: 2021, end: 20240529
  6. MIRABEGRON [Concomitant]
     Active Substance: MIRABEGRON
     Dosage: 1 TABLET
  7. CHOLECALCIFEROL [Concomitant]
     Active Substance: CHOLECALCIFEROL
     Route: 048
  8. AMITRIPTYLINE HYDROCHLORIDE [Concomitant]
     Active Substance: AMITRIPTYLINE HYDROCHLORIDE
     Route: 048
  9. MAGNESIUM [Concomitant]
     Active Substance: MAGNESIUM
  10. PREGABALIN [Concomitant]
     Active Substance: PREGABALIN
     Route: 048
  11. BACLOFEN [Concomitant]
     Active Substance: BACLOFEN
     Route: 048

REACTIONS (12)
  - General physical health deterioration [Not Recovered/Not Resolved]
  - Drug ineffective [Unknown]
  - Fall [Unknown]
  - Arthralgia [Unknown]
  - Micturition urgency [Not Recovered/Not Resolved]
  - Multiple sclerosis [Recovering/Resolving]
  - Multiple sclerosis [Unknown]
  - Pain [Not Recovered/Not Resolved]
  - Fatigue [Not Recovered/Not Resolved]
  - Renal impairment [Unknown]
  - Urinary tract infection [Recovered/Resolved]
  - Oedema [Recovering/Resolving]

NARRATIVE: CASE EVENT DATE: 20220601
